FAERS Safety Report 23898118 (Version 5)
Quarter: 2024Q4

REPORT INFORMATION
  Report Type: Spontaneous
  Country: US (occurrence: US)
  Receive Date: 20240524
  Receipt Date: 20241112
  Transmission Date: 20250114
  Serious: No
  Sender: SANOFI AVENTIS
  Company Number: US-SA-SAC20240523000562

PATIENT
  Age: 58 Year
  Sex: Male

DRUGS (2)
  1. ALPROLIX [Suspect]
     Active Substance: EFTRENONACOG ALFA
     Dosage: 4330 IU ((+/- 10%) , QW
     Route: 042
  2. ALPROLIX [Suspect]
     Active Substance: EFTRENONACOG ALFA
     Dosage: 4330 IU ((+/- 10%) , QW
     Route: 042

REACTIONS (4)
  - Arthralgia [Unknown]
  - Joint swelling [Unknown]
  - Haemorrhage [Unknown]
  - Chest pain [Unknown]

NARRATIVE: CASE EVENT DATE: 20240601
